FAERS Safety Report 19064775 (Version 1)
Quarter: 2021Q1

REPORT INFORMATION
  Report Type: Spontaneous
  Country: FR (occurrence: FR)
  Receive Date: 20210326
  Receipt Date: 20210326
  Transmission Date: 20210420
  Serious: Yes (Other)
  Sender: FDA-Public Use
  Company Number: FR-TAKEDA-2021TUS017655

PATIENT
  Age: 87 Year
  Sex: Male

DRUGS (1)
  1. XAGRID [Suspect]
     Active Substance: ANAGRELIDE HYDROCHLORIDE
     Indication: ESSENTIAL THROMBOCYTHAEMIA
     Dosage: 3 DOSAGE FORM, 1/WEEK
     Route: 048
     Dates: start: 201911

REACTIONS (2)
  - Nail dystrophy [Not Recovered/Not Resolved]
  - Cyanosis [Not Recovered/Not Resolved]
